FAERS Safety Report 12501592 (Version 1)
Quarter: 2016Q2

REPORT INFORMATION
  Report Type: Report from Study
  Country: US (occurrence: US)
  Receive Date: 20160627
  Receipt Date: 20160627
  Transmission Date: 20160815
  Serious: Yes (Hospitalization)
  Sender: FDA-Public Use
  Company Number: US-ABBVIE-16K-163-1658488-00

PATIENT
  Sex: Female

DRUGS (2)
  1. HUMIRA [Suspect]
     Active Substance: ADALIMUMAB
     Indication: IRRITABLE BOWEL SYNDROME
     Route: 058
     Dates: start: 2016
  2. HUMIRA [Suspect]
     Active Substance: ADALIMUMAB
     Indication: RHEUMATOID ARTHRITIS
     Route: 058
     Dates: end: 201601

REACTIONS (8)
  - Diarrhoea [Unknown]
  - Gait disturbance [Unknown]
  - Transfusion [Unknown]
  - Dehydration [Unknown]
  - Blood potassium decreased [Unknown]
  - Tuberculin test positive [Recovered/Resolved]
  - Decreased appetite [Unknown]
  - Drug ineffective [Unknown]

NARRATIVE: CASE EVENT DATE: 2016
